FAERS Safety Report 19179697 (Version 1)
Quarter: 2021Q2

REPORT INFORMATION
  Report Type: Spontaneous
  Country: US (occurrence: US)
  Receive Date: 20210426
  Receipt Date: 20210426
  Transmission Date: 20210717
  Serious: No
  Sender: FDA-Public Use
  Company Number: US-TAKEDA-2021TUS024478

PATIENT
  Sex: Female
  Weight: 37 kg

DRUGS (1)
  1. ENTYVIO [Suspect]
     Active Substance: VEDOLIZUMAB
     Indication: CROHN^S DISEASE
     Dosage: UNK
     Route: 042

REACTIONS (7)
  - Dizziness [Unknown]
  - Blood glucose increased [Unknown]
  - Fatigue [Unknown]
  - Visual impairment [Unknown]
  - Tremor [Unknown]
  - Decreased appetite [Unknown]
  - Dyspnoea [Unknown]
